FAERS Safety Report 5189405-1 (Version None)
Quarter: 2006Q4

REPORT INFORMATION
  Report Type: 
  Country: None (occurrence: None)
  Receive Date: 20061221
  Receipt Date: 20061219
  Transmission Date: 20070319
  Serious: Yes (Life-Threatening, Hospitalization, Disabling, Other)
  Sender: FDA-Public Use
  Company Number: US-MERCK-0612USA03109

PATIENT
  Age: 49 Year
  Sex: Male

DRUGS (9)
  1. JANUVIA [Suspect]
     Indication: DIABETES MELLITUS NON-INSULIN-DEPENDENT
     Route: 048
     Dates: start: 20061206, end: 20061212
  2. GLUCOPHAGE [Concomitant]
     Route: 065
  3. AVANDIA [Concomitant]
     Route: 065
  4. GLIPIZIDE [Concomitant]
     Route: 065
  5. ATENOLOL [Concomitant]
     Route: 065
  6. ALLOPURINOL [Concomitant]
     Route: 065
  7. ASPIRIN [Concomitant]
     Route: 065
  8. ATACAND [Concomitant]
     Route: 065
  9. INFLUENZA VIRUS VACCINE (UNSPECIFIED) [Concomitant]
     Route: 065
     Dates: start: 20061206

REACTIONS (3)
  - MENINGITIS [None]
  - MENINGITIS ASEPTIC [None]
  - MENINGITIS VIRAL [None]
